FAERS Safety Report 6386904-1 (Version None)
Quarter: 2009Q4

REPORT INFORMATION
  Report Type: 
  Country: None (occurrence: None)
  Receive Date: 20091001
  Receipt Date: 20091001
  Transmission Date: 20100525
  Serious: Yes (Other)
  Sender: FDA-Public Use
  Company Number: None

PATIENT
  Age: 39 Year
  Sex: Female

DRUGS (1)
  1. KY INTENSE AROUSAL GEL [Suspect]
     Dosage: TOPICAL
     Route: 061
     Dates: start: 20090901

REACTIONS (4)
  - CYSTITIS [None]
  - DRUG INEFFECTIVE [None]
  - GRAND MAL CONVULSION [None]
  - URINARY TRACT INFECTION [None]
